FAERS Safety Report 4877183-2 (Version None)
Quarter: 2005Q4

REPORT INFORMATION
  Report Type: 
  Country: None (occurrence: None)
  Receive Date: 20051206
  Receipt Date: 20050929
  Transmission Date: 20060501
  Serious: No
  Sender: FDA-Public Use
  Company Number: USA0509109545

PATIENT
  Age: 80 Year
  Sex: Male

DRUGS (2)
  1. CYMBALTA [Suspect]
     Indication: PARKINSON'S DISEASE
     Dosage: 60 MG DAY
     Dates: start: 20050911
  2. SANCTURIA (TROSPIUM CHLORIDE) [Concomitant]

REACTIONS (6)
  - CONFUSIONAL STATE [None]
  - DIFFICULTY IN WALKING [None]
  - GENITAL PAIN MALE [None]
  - NOCTURIA [None]
  - POLLAKIURIA [None]
  - URINARY RETENTION [None]
